FAERS Safety Report 9967032 (Version 2)
Quarter: 2014Q1

REPORT INFORMATION
  Report Type: Spontaneous
  Country: CA (occurrence: CA)
  Receive Date: 20140305
  Receipt Date: 20140305
  Transmission Date: 20141002
  Serious: Yes (Hospitalization, Other)
  Sender: FDA-Public Use
  Company Number: CA-BAXTER-2014BAX009337

PATIENT
  Age: 84 Year
  Sex: Male

DRUGS (3)
  1. DIANEAL PD4 SOLUTION WITH 1.5% DEXTROSE AND 2.5 MEQ/L CALCIUM [Suspect]
     Indication: NEPHROPATHY
     Dosage: 3 BAGS
     Route: 033
     Dates: start: 2013
  2. DIANEAL PD4 SOLUTION WITH 1.5% DEXTROSE AND 2.5 MEQ/L CALCIUM [Suspect]
     Dosage: 1 BAG
     Route: 033
     Dates: start: 2013
  3. DIANEAL PD4 SOLUTION WITH 2.5% DEXTROSE AND 2.5 MEQ/L CALCIUM [Suspect]
     Indication: NEPHROPATHY
     Route: 033

REACTIONS (4)
  - Poor peripheral circulation [Recovering/Resolving]
  - Pericardial effusion [Not Recovered/Not Resolved]
  - Pneumonia [Recovered/Resolved]
  - Blood pressure fluctuation [Not Recovered/Not Resolved]
